FAERS Safety Report 5868411-5 (Version None)
Quarter: 2008Q3

REPORT INFORMATION
  Report Type: 
  Country: None (occurrence: None)
  Receive Date: 20080903
  Receipt Date: 20080825
  Transmission Date: 20090109
  Serious: Yes (Other)
  Sender: FDA-Public Use
  Company Number: CA-ABBOTT-08P-028-0454341-00

PATIENT
  Sex: Female

DRUGS (3)
  1. HUMIRA [Suspect]
     Indication: CROHN'S DISEASE
     Route: 058
     Dates: start: 20080125
  2. CLORAX [Concomitant]
     Indication: DRUG USE FOR UNKNOWN INDICATION
  3. ANTIBIOTICS [Concomitant]
     Indication: DRUG USE FOR UNKNOWN INDICATION

REACTIONS (16)
  - DENTAL CARIES [None]
  - DIARRHOEA [None]
  - EATING DISORDER [None]
  - ENDODONTIC PROCEDURE [None]
  - FACE INJURY [None]
  - FACIAL PAIN [None]
  - FALL [None]
  - HEAD INJURY [None]
  - LOSS OF CONSCIOUSNESS [None]
  - ORAL INFECTION [None]
  - ORAL PAIN [None]
  - PERIODONTAL INFECTION [None]
  - TONGUE INJURY [None]
  - TOOTH DISORDER [None]
  - TOOTH EROSION [None]
  - WEIGHT DECREASED [None]
